FAERS Safety Report 5742979-1 (Version None)
Quarter: 2008Q2

REPORT INFORMATION
  Report Type: 
  Country: None (occurrence: None)
  Receive Date: 20080515
  Receipt Date: 20080515
  Transmission Date: 20081010
  Serious: Yes (Other)
  Sender: FDA-Public Use
  Company Number: None

PATIENT
  Sex: Male

DRUGS (1)
  1. HYDROXYZINE HCL [Suspect]
     Indication: GENERALISED ANXIETY DISORDER
     Dosage: 1 BID

REACTIONS (1)
  - SALIVARY HYPERSECRETION [None]
